FAERS Safety Report 6508931-3 (Version None)
Quarter: 2009Q4

REPORT INFORMATION
  Report Type: 
  Country: None (occurrence: None)
  Receive Date: 20091221
  Receipt Date: 20090921
  Transmission Date: 20100525
  Serious: No
  Sender: FDA-Public Use
  Company Number: US-ASTRAZENECA-2009SE14268

PATIENT
  Sex: Female

DRUGS (5)
  1. CRESTOR [Suspect]
     Route: 048
     Dates: start: 20090501, end: 20090801
  2. CRESTOR [Suspect]
     Route: 048
     Dates: start: 20090801
  3. TOPROL-XL [Concomitant]
  4. LISINOPRIL [Concomitant]
  5. ANTIBIOTICS [Concomitant]

REACTIONS (2)
  - ALOPECIA [None]
  - PRURITUS [None]
